FAERS Safety Report 7027944-9 (Version None)
Quarter: 2010Q4

REPORT INFORMATION
  Report Type: 
  Country: None (occurrence: None)
  Receive Date: 20101005
  Receipt Date: 20100917
  Transmission Date: 20110411
  Serious: Yes (Life-Threatening, Hospitalization, Other)
  Sender: FDA-Public Use
  Company Number: FR-BAYER-201040830GPV

PATIENT
  Age: 73 Year
  Sex: Male

DRUGS (3)
  1. FLUDARA [Suspect]
     Indication: CHRONIC LYMPHOCYTIC LEUKAEMIA
     Dosage: 5 CYCLES
     Route: 042
     Dates: start: 20080101, end: 20080801
  2. ENDOXAN [Suspect]
     Indication: CHRONIC LYMPHOCYTIC LEUKAEMIA
     Dosage: 5 CYCLES
     Route: 042
     Dates: start: 20080101, end: 20080801
  3. MABTHERA [Suspect]
     Indication: CHRONIC LYMPHOCYTIC LEUKAEMIA
     Dosage: 4 CYCLES
     Dates: start: 20080201, end: 20080801

REACTIONS (7)
  - ANAEMIA [None]
  - CELLULITIS [None]
  - KARYOTYPE ANALYSIS ABNORMAL [None]
  - MYELODYSPLASTIC SYNDROME [None]
  - PANCYTOPENIA [None]
  - SEPSIS [None]
  - THROMBOCYTOPENIA [None]
